FAERS Safety Report 4906633-8 (Version None)
Quarter: 2006Q1

REPORT INFORMATION
  Report Type: 
  Country: None (occurrence: None)
  Receive Date: 20060209
  Receipt Date: 20060202
  Transmission Date: 20060701
  Serious: Yes (Other)
  Sender: FDA-Public Use
  Company Number: CH-GLAXOSMITHKLINE-B0409245A

PATIENT
  Age: 24 Year
  Sex: Female

DRUGS (2)
  1. SERETIDE [Suspect]
     Indication: ASTHMA
     Dosage: 250MCG PER DAY
     Route: 055
     Dates: start: 20051229, end: 20060104
  2. ETHINYLESTRADIOL + CYPROTERONE [Suspect]
     Indication: ORAL CONTRACEPTION
     Dosage: 2MG PER DAY
     Route: 048
     Dates: start: 20051111, end: 20051230

REACTIONS (2)
  - DRUG EXPOSURE DURING PREGNANCY [None]
  - PREGNANCY ON ORAL CONTRACEPTIVE [None]
